FAERS Safety Report 5214226-0 (Version None)
Quarter: 2007Q1

REPORT INFORMATION
  Report Type: 
  Country: None (occurrence: None)
  Receive Date: 20070122
  Receipt Date: 20070111
  Transmission Date: 20070707
  Serious: Yes (Hospitalization)
  Sender: FDA-Public Use
  Company Number: 2007CG00085

PATIENT
  Age: 72 Year
  Sex: Male
  Weight: 73 kg

DRUGS (10)
  1. NEXIUM [Suspect]
     Route: 048
     Dates: start: 20061208, end: 20061208
  2. NEXIUM [Suspect]
     Route: 048
     Dates: start: 20061209, end: 20061211
  3. NEXIUM [Suspect]
     Route: 042
     Dates: start: 20061206, end: 20061207
  4. LASIX [Concomitant]
  5. PERFALGAN [Concomitant]
     Route: 042
  6. CONTRAMAL [Concomitant]
  7. AMLOR [Concomitant]
     Route: 048
  8. LOVENOX [Concomitant]
  9. ZOFRAN [Concomitant]
  10. KAYEXALATE [Concomitant]

REACTIONS (4)
  - CONFUSIONAL STATE [None]
  - DISORIENTATION [None]
  - HALLUCINATION, AUDITORY [None]
  - HALLUCINATION, VISUAL [None]
